FAERS Safety Report 21686109 (Version 3)
Quarter: 2023Q1

REPORT INFORMATION
  Report Type: Spontaneous
  Country: US (occurrence: US)
  Receive Date: 20221206
  Receipt Date: 20230111
  Transmission Date: 20230418
  Serious: No
  Sender: FDA-Public Use
  Company Number: US-JNJFOC-20221161217

PATIENT
  Age: 57 Year
  Sex: Female

DRUGS (1)
  1. ZYRTEC [Suspect]
     Active Substance: CETIRIZINE HYDROCHLORIDE
     Indication: Multiple allergies
     Dosage: 1.5 TABS DAILY FOR 5 DAYS
     Route: 065
     Dates: start: 20221120

REACTIONS (9)
  - Rash [Recovering/Resolving]
  - Overdose [Unknown]
  - Malaise [Recovering/Resolving]
  - Hepatic enzyme increased [Unknown]
  - Blood urea decreased [Unknown]
  - Mean cell volume increased [Unknown]
  - Mean cell haemoglobin increased [Unknown]
  - Product odour abnormal [Unknown]
  - Product physical issue [Unknown]

NARRATIVE: CASE EVENT DATE: 20221101
